FAERS Safety Report 24577175 (Version 1)
Quarter: 2024Q4

REPORT INFORMATION
  Report Type: Spontaneous
  Country: US (occurrence: US)
  Receive Date: 20241104
  Receipt Date: 20241104
  Transmission Date: 20250115
  Serious: No
  Sender: PERRIGO
  Company Number: US-PERRIGO-23US012479

PATIENT
  Age: 83 Year
  Sex: Male
  Weight: 117.91 kg

DRUGS (3)
  1. POLYETHYLENE GLYCOL 3350 [Suspect]
     Active Substance: POLYETHYLENE GLYCOL 3350
     Indication: Bowel movement irregularity
     Dosage: 17 G, QD
     Route: 048
     Dates: start: 202210
  2. METAMUCIL [Concomitant]
     Active Substance: PLANTAGO SEED
     Indication: Bowel movement irregularity
     Dosage: UNK
     Route: 065
     Dates: start: 202210
  3. DULCOLAX STOOL SOFTENER [Concomitant]
     Active Substance: DOCUSATE SODIUM
     Indication: Bowel movement irregularity
     Dosage: UNK
     Route: 065
     Dates: start: 202210

REACTIONS (1)
  - Incorrect product administration duration [Unknown]

NARRATIVE: CASE EVENT DATE: 20221001
